FAERS Safety Report 12815234 (Version 3)
Quarter: 2017Q1

REPORT INFORMATION
  Report Type: Report from Study
  Country: JP (occurrence: JP)
  Receive Date: 20161005
  Receipt Date: 20170330
  Transmission Date: 20170428
  Serious: Yes (Life-Threatening, Hospitalization)
  Sender: FDA-Public Use
  Company Number: JP-JNJFOC-20161001051

PATIENT
  Age: 63 Year
  Sex: Male
  Weight: 83 kg

DRUGS (2)
  1. YONDELIS [Suspect]
     Active Substance: TRABECTEDIN
     Indication: MYXOID LIPOSARCOMA
     Route: 041
     Dates: start: 20160627
  2. DEXAMETHASONE. [Concomitant]
     Active Substance: DEXAMETHASONE
     Route: 065
     Dates: start: 20160627

REACTIONS (9)
  - Hypoalbuminaemia [Not Recovered/Not Resolved]
  - Bone marrow failure [Recovered/Resolved]
  - Blood alkaline phosphatase increased [Recovering/Resolving]
  - Aspartate aminotransferase increased [Recovered/Resolved]
  - Prostate infection [Recovered/Resolved]
  - Hepatic infection [Recovered/Resolved]
  - Blood bilirubin increased [Recovered/Resolved]
  - Febrile neutropenia [Recovered/Resolved]
  - Alanine aminotransferase increased [Recovered/Resolved]

NARRATIVE: CASE EVENT DATE: 20160630
